FAERS Safety Report 9966459 (Version 2)
Quarter: 2014Q1

REPORT INFORMATION
  Report Type: Report from Study
  Country: US (occurrence: US)
  Receive Date: 20140305
  Receipt Date: 20140305
  Transmission Date: 20141002
  Serious: No
  Sender: FDA-Public Use
  Company Number: US-ABBVIE-13P-163-1114862-00

PATIENT
  Age: 46 Year
  Sex: Female

DRUGS (3)
  1. HUMIRA [Suspect]
     Indication: PSORIASIS
     Dates: start: 20130617
  2. HUMIRA [Suspect]
     Dates: start: 20130624
  3. ARNICA [Concomitant]
     Indication: ANXIETY
     Dosage: DAILY

REACTIONS (6)
  - Road traffic accident [Recovering/Resolving]
  - Heart rate increased [Recovered/Resolved]
  - Palpitations [Recovered/Resolved]
  - Traumatic haematoma [Recovering/Resolving]
  - Musculoskeletal chest pain [Recovering/Resolving]
  - Neck pain [Recovering/Resolving]
